FAERS Safety Report 9804652 (Version 5)
Quarter: 2016Q2

REPORT INFORMATION
  Report Type: Spontaneous
  Country: US (occurrence: US)
  Receive Date: 20140108
  Receipt Date: 20160401
  Transmission Date: 20160815
  Serious: Yes (Disabling, Other)
  Sender: FDA-Public Use
  Company Number: US-009507513-1205USA00069

PATIENT
  Sex: Male
  Weight: 61.22 kg

DRUGS (1)
  1. PROPECIA [Suspect]
     Active Substance: FINASTERIDE
     Indication: ALOPECIA
     Dosage: 1 MG, Q24H
     Route: 048
     Dates: start: 20000927, end: 20031212

REACTIONS (18)
  - Loss of libido [Not Recovered/Not Resolved]
  - Ejaculation failure [Unknown]
  - Anorectal disorder [Unknown]
  - Depression [Unknown]
  - Sexual dysfunction [Unknown]
  - Rectal haemorrhage [Unknown]
  - Post lumbar puncture syndrome [Unknown]
  - Cognitive disorder [Unknown]
  - Syphilis [Unknown]
  - Erythema [Unknown]
  - Emotional distress [Unknown]
  - Erectile dysfunction [Not Recovered/Not Resolved]
  - Semen volume decreased [Unknown]
  - Rash generalised [Unknown]
  - Rash [Unknown]
  - Night sweats [Unknown]
  - Surgery [Unknown]
  - Herpes virus infection [Unknown]

NARRATIVE: CASE EVENT DATE: 2000
